FAERS Safety Report 25452274 (Version 1)
Quarter: 2025Q2

REPORT INFORMATION
  Report Type: Spontaneous
  Country: CA (occurrence: CA)
  Receive Date: 20250618
  Receipt Date: 20250618
  Transmission Date: 20250716
  Serious: Yes (Other)
  Sender: SANDOZ
  Company Number: CA-002147023-NVSC2025CA092881

PATIENT
  Age: 41 Year
  Sex: Female

DRUGS (150)
  1. AMOXICILLIN TRIHYDRATE [Suspect]
     Active Substance: AMOXICILLIN
     Route: 065
  2. AMOXICILLIN TRIHYDRATE [Suspect]
     Active Substance: AMOXICILLIN
     Route: 065
  3. AMOXICILLIN TRIHYDRATE [Suspect]
     Active Substance: AMOXICILLIN
     Indication: Product used for unknown indication
     Route: 065
  4. ACETAMINOPHEN [Suspect]
     Active Substance: ACETAMINOPHEN
     Indication: Product used for unknown indication
     Route: 065
  5. ACETAMINOPHEN [Suspect]
     Active Substance: ACETAMINOPHEN
     Route: 065
  6. BOTULINUM TOXIN TYPE A [Suspect]
     Active Substance: BOTULINUM TOXIN TYPE A
     Indication: Product used for unknown indication
     Route: 065
  7. BOTULINUM TOXIN TYPE A [Suspect]
     Active Substance: BOTULINUM TOXIN TYPE A
     Indication: Product used for unknown indication
     Route: 065
  8. CIPROFLOXACIN [Suspect]
     Active Substance: CIPROFLOXACIN
     Route: 048
  9. CIPROFLOXACIN [Suspect]
     Active Substance: CIPROFLOXACIN
     Route: 065
  10. CIPROFLOXACIN [Suspect]
     Active Substance: CIPROFLOXACIN
     Route: 065
  11. CIPROFLOXACIN [Suspect]
     Active Substance: CIPROFLOXACIN
     Indication: Product used for unknown indication
     Route: 065
  12. CLARITHROMYCIN [Suspect]
     Active Substance: CLARITHROMYCIN
     Dosage: 1 DOSAGE FORM, Q12H
     Route: 065
  13. CLARITHROMYCIN [Suspect]
     Active Substance: CLARITHROMYCIN
     Indication: Product used for unknown indication
     Route: 065
  14. CLARITHROMYCIN [Suspect]
     Active Substance: CLARITHROMYCIN
     Route: 065
  15. CODEINE [Suspect]
     Active Substance: CODEINE
     Indication: Migraine
     Route: 065
  16. DEXAMETHASONE [Suspect]
     Active Substance: DEXAMETHASONE
     Indication: Migraine
     Route: 065
  17. DEXAMETHASONE [Suspect]
     Active Substance: DEXAMETHASONE
     Route: 065
  18. DULOXETINE HYDROCHLORIDE [Suspect]
     Active Substance: DULOXETINE HYDROCHLORIDE
     Indication: Migraine
     Route: 065
  19. DULOXETINE HYDROCHLORIDE [Suspect]
     Active Substance: DULOXETINE HYDROCHLORIDE
     Indication: Migraine
     Route: 065
  20. ESCITALOPRAM [Suspect]
     Active Substance: ESCITALOPRAM OXALATE
     Indication: Migraine
     Route: 065
  21. ESOMEPRAZOLE [Suspect]
     Active Substance: ESOMEPRAZOLE
     Indication: Migraine
     Route: 065
  22. FLUCONAZOLE [Suspect]
     Active Substance: FLUCONAZOLE
     Indication: Product used for unknown indication
     Route: 065
  23. HYDROMORPHONE [Suspect]
     Active Substance: HYDROMORPHONE
     Dosage: 1 DOSAGE FORM, Q12H
     Route: 065
  24. HYDROMORPHONE [Suspect]
     Active Substance: HYDROMORPHONE
     Dosage: 1 DOSAGE FORM, Q12H
     Route: 065
  25. HYDROMORPHONE [Suspect]
     Active Substance: HYDROMORPHONE
     Dosage: 1 DOSAGE FORM, Q12H
     Route: 065
  26. HYDROMORPHONE [Suspect]
     Active Substance: HYDROMORPHONE
     Dosage: 1 DOSAGE FORM, Q12H
     Route: 065
  27. HYDROMORPHONE [Suspect]
     Active Substance: HYDROMORPHONE
     Dosage: 1 DOSAGE FORM, Q12H
     Route: 065
  28. HYDROMORPHONE [Suspect]
     Active Substance: HYDROMORPHONE
     Dosage: 1 DOSAGE FORM, Q12H
     Route: 065
  29. HYDROMORPHONE [Suspect]
     Active Substance: HYDROMORPHONE
     Dosage: 1 DOSAGE FORM, Q12H
     Route: 065
  30. HYDROMORPHONE [Suspect]
     Active Substance: HYDROMORPHONE
     Dosage: 1 DOSAGE FORM, Q12H
     Route: 065
  31. HYDROMORPHONE [Suspect]
     Active Substance: HYDROMORPHONE
     Indication: Migraine
     Route: 065
  32. HYDROMORPHONE [Suspect]
     Active Substance: HYDROMORPHONE
     Route: 065
  33. HYDROMORPHONE [Suspect]
     Active Substance: HYDROMORPHONE
     Route: 065
  34. SCOPOLAMINE [Suspect]
     Active Substance: SCOPOLAMINE
     Indication: Migraine
     Route: 065
  35. INDOMETHACIN SODIUM [Suspect]
     Active Substance: INDOMETHACIN SODIUM
     Dosage: 1 DOSAGE FORM, Q12H
     Route: 054
  36. INDOMETHACIN SODIUM [Suspect]
     Active Substance: INDOMETHACIN SODIUM
     Dosage: 1 DOSAGE FORM, Q12H
     Route: 054
  37. INDOMETHACIN SODIUM [Suspect]
     Active Substance: INDOMETHACIN SODIUM
     Dosage: 1 DOSAGE FORM, Q12H
     Route: 054
  38. INDOMETHACIN SODIUM [Suspect]
     Active Substance: INDOMETHACIN SODIUM
     Dosage: 1 DOSAGE FORM, Q12H
     Route: 054
  39. INDOMETHACIN SODIUM [Suspect]
     Active Substance: INDOMETHACIN SODIUM
     Dosage: 1 DOSAGE FORM, Q12H
     Route: 054
  40. INDOMETHACIN SODIUM [Suspect]
     Active Substance: INDOMETHACIN SODIUM
     Dosage: 1 DOSAGE FORM, Q12H
     Route: 054
  41. INDOMETHACIN SODIUM [Suspect]
     Active Substance: INDOMETHACIN SODIUM
     Dosage: 1 DOSAGE FORM, Q12H
     Route: 054
  42. INDOMETHACIN SODIUM [Suspect]
     Active Substance: INDOMETHACIN SODIUM
     Dosage: 1 DOSAGE FORM, Q12H
     Route: 054
  43. INDOMETHACIN SODIUM [Suspect]
     Active Substance: INDOMETHACIN SODIUM
     Dosage: 1 DOSAGE FORM, Q12H
     Route: 054
  44. INDOMETHACIN SODIUM [Suspect]
     Active Substance: INDOMETHACIN SODIUM
     Dosage: 1 DOSAGE FORM, Q12H
     Route: 054
  45. INDOMETHACIN SODIUM [Suspect]
     Active Substance: INDOMETHACIN SODIUM
     Indication: Product used for unknown indication
     Route: 054
  46. INDOMETHACIN SODIUM [Suspect]
     Active Substance: INDOMETHACIN SODIUM
     Route: 054
  47. INDOMETHACIN SODIUM [Suspect]
     Active Substance: INDOMETHACIN SODIUM
     Route: 054
  48. INDOMETHACIN SODIUM [Suspect]
     Active Substance: INDOMETHACIN SODIUM
     Route: 054
  49. INDOMETHACIN SODIUM [Suspect]
     Active Substance: INDOMETHACIN SODIUM
     Route: 054
  50. INDOMETHACIN SODIUM [Suspect]
     Active Substance: INDOMETHACIN SODIUM
     Route: 054
  51. INDOMETHACIN SODIUM [Suspect]
     Active Substance: INDOMETHACIN SODIUM
     Route: 054
  52. INDOMETHACIN SODIUM [Suspect]
     Active Substance: INDOMETHACIN SODIUM
     Route: 054
  53. INDOMETHACIN SODIUM [Suspect]
     Active Substance: INDOMETHACIN SODIUM
     Route: 054
  54. INDOMETHACIN SODIUM [Suspect]
     Active Substance: INDOMETHACIN SODIUM
     Route: 054
  55. INDOMETHACIN SODIUM [Suspect]
     Active Substance: INDOMETHACIN SODIUM
     Route: 054
  56. INDOMETHACIN SODIUM [Suspect]
     Active Substance: INDOMETHACIN SODIUM
     Route: 054
  57. INDOMETHACIN SODIUM [Suspect]
     Active Substance: INDOMETHACIN SODIUM
     Route: 054
  58. INDOMETHACIN SODIUM [Suspect]
     Active Substance: INDOMETHACIN SODIUM
     Route: 054
  59. LANSOPRAZOLE [Suspect]
     Active Substance: LANSOPRAZOLE
     Indication: Product used for unknown indication
     Route: 065
  60. LISINOPRIL [Suspect]
     Active Substance: LISINOPRIL
     Indication: Product used for unknown indication
     Dosage: 1 DOSAGE FORM, QD
     Route: 048
  61. LISINOPRIL [Suspect]
     Active Substance: LISINOPRIL
     Indication: Product used for unknown indication
     Dosage: 1 DOSAGE FORM, QD
     Route: 048
  62. LISINOPRIL [Suspect]
     Active Substance: LISINOPRIL
     Route: 065
  63. LISINOPRIL [Suspect]
     Active Substance: LISINOPRIL
     Route: 065
  64. METRONIDAZOLE [Suspect]
     Active Substance: METRONIDAZOLE
     Indication: Product used for unknown indication
     Route: 065
  65. AZITHROMYCIN ANHYDROUS [Suspect]
     Active Substance: AZITHROMYCIN ANHYDROUS
     Indication: Product used for unknown indication
     Route: 065
  66. PREDNISONE [Suspect]
     Active Substance: PREDNISONE
     Dosage: 2 DOSAGE FORM, QD
     Route: 065
  67. PREDNISONE [Suspect]
     Active Substance: PREDNISONE
     Indication: Product used for unknown indication
     Route: 065
  68. SERTRALINE HYDROCHLORIDE [Suspect]
     Active Substance: SERTRALINE HYDROCHLORIDE
     Indication: Product used for unknown indication
     Route: 065
  69. SERTRALINE HYDROCHLORIDE [Suspect]
     Active Substance: SERTRALINE HYDROCHLORIDE
     Route: 065
  70. SUMATRIPTAN [Suspect]
     Active Substance: SUMATRIPTAN
     Route: 065
  71. SUMATRIPTAN [Suspect]
     Active Substance: SUMATRIPTAN
     Indication: Migraine
     Route: 065
  72. TOPIRAMATE [Suspect]
     Active Substance: TOPIRAMATE
     Route: 065
  73. TOPIRAMATE [Suspect]
     Active Substance: TOPIRAMATE
     Indication: Product used for unknown indication
     Route: 065
  74. TRAMADOL HYDROCHLORIDE [Suspect]
     Active Substance: TRAMADOL HYDROCHLORIDE
     Indication: Product used for unknown indication
     Route: 065
  75. SULFAMETHOXAZOLE\TRIMETHOPRIM [Suspect]
     Active Substance: SULFAMETHOXAZOLE\TRIMETHOPRIM
     Indication: Product used for unknown indication
     Route: 065
  76. VENLAFAXINE HYDROCHLORIDE [Suspect]
     Active Substance: VENLAFAXINE HYDROCHLORIDE
     Indication: Product used for unknown indication
     Route: 065
  77. VENLAFAXINE HYDROCHLORIDE [Suspect]
     Active Substance: VENLAFAXINE HYDROCHLORIDE
     Route: 065
  78. ZOLMITRIPTAN [Suspect]
     Active Substance: ZOLMITRIPTAN
     Indication: Product used for unknown indication
     Route: 065
  79. ZOPICLONE [Suspect]
     Active Substance: ZOPICLONE
     Indication: Migraine
     Dosage: 1 DOSAGE FORM, QD
     Route: 065
  80. ZOPICLONE [Suspect]
     Active Substance: ZOPICLONE
     Dosage: 1 DOSAGE FORM, QD
     Route: 065
  81. ZOPICLONE [Suspect]
     Active Substance: ZOPICLONE
     Dosage: 1 DOSAGE FORM, QD
     Route: 065
  82. ZOPICLONE [Suspect]
     Active Substance: ZOPICLONE
     Dosage: 1 DOSAGE FORM, QD
     Route: 065
  83. ZOPICLONE [Suspect]
     Active Substance: ZOPICLONE
     Dosage: 1 DOSAGE FORM, QD
     Route: 065
  84. ZOPICLONE [Suspect]
     Active Substance: ZOPICLONE
     Dosage: 1 DOSAGE FORM, QD
     Route: 065
  85. ZOPICLONE [Suspect]
     Active Substance: ZOPICLONE
     Dosage: 1 DOSAGE FORM, QD
     Route: 065
  86. ZOPICLONE [Suspect]
     Active Substance: ZOPICLONE
     Dosage: 1 DOSAGE FORM, QD
     Route: 065
  87. ZOPICLONE [Suspect]
     Active Substance: ZOPICLONE
     Dosage: 1 DOSAGE FORM, QD
     Route: 065
  88. ZOPICLONE [Suspect]
     Active Substance: ZOPICLONE
     Dosage: 1 DOSAGE FORM, QD
     Route: 065
  89. ZOPICLONE [Suspect]
     Active Substance: ZOPICLONE
     Dosage: 1 DOSAGE FORM, QD
     Route: 065
  90. ZOPICLONE [Suspect]
     Active Substance: ZOPICLONE
     Dosage: 1 DOSAGE FORM, QD
     Route: 065
  91. ZOPICLONE [Suspect]
     Active Substance: ZOPICLONE
     Dosage: 1 DOSAGE FORM, QD
     Route: 065
  92. ZOPICLONE [Suspect]
     Active Substance: ZOPICLONE
     Dosage: 1 DOSAGE FORM, QD
     Route: 065
  93. ZOPICLONE [Suspect]
     Active Substance: ZOPICLONE
     Dosage: 1 DOSAGE FORM, QD
     Route: 065
  94. ZOPICLONE [Suspect]
     Active Substance: ZOPICLONE
     Dosage: 1 DOSAGE FORM, QD
     Route: 065
  95. ZOPICLONE [Suspect]
     Active Substance: ZOPICLONE
     Dosage: 1 DOSAGE FORM, QD
     Route: 065
  96. ZOPICLONE [Suspect]
     Active Substance: ZOPICLONE
     Dosage: 1 DOSAGE FORM, QD
     Route: 065
  97. ZOPICLONE [Suspect]
     Active Substance: ZOPICLONE
     Dosage: 1 DOSAGE FORM, QD
     Route: 065
  98. ZOPICLONE [Suspect]
     Active Substance: ZOPICLONE
     Dosage: 1 DOSAGE FORM, QD
     Route: 065
  99. ZOPICLONE [Suspect]
     Active Substance: ZOPICLONE
     Dosage: 1 DOSAGE FORM, QD
     Route: 065
  100. ZOPICLONE [Suspect]
     Active Substance: ZOPICLONE
     Route: 065
  101. ZOPICLONE [Suspect]
     Active Substance: ZOPICLONE
     Route: 065
  102. CEFUROXIME [Concomitant]
     Active Substance: CEFUROXIME
     Indication: Product used for unknown indication
     Route: 065
  103. CEPHALEXIN [Concomitant]
     Active Substance: CEPHALEXIN
     Indication: Product used for unknown indication
     Route: 065
  104. DANAZOL [Concomitant]
     Active Substance: DANAZOL
     Indication: Product used for unknown indication
     Route: 065
  105. CYMBALTA [Concomitant]
     Active Substance: DULOXETINE HYDROCHLORIDE
     Indication: Product used for unknown indication
     Route: 065
  106. FERROUS FUMARATE [Concomitant]
     Active Substance: FERROUS FUMARATE
     Indication: Product used for unknown indication
     Route: 065
  107. FLUOXETINE [Concomitant]
     Active Substance: FLUOXETINE HYDROCHLORIDE
     Indication: Product used for unknown indication
     Route: 065
  108. FLUTICASONE [Concomitant]
     Active Substance: FLUTICASONE
     Indication: Product used for unknown indication
     Route: 065
  109. FROVATRIPTAN [Concomitant]
     Active Substance: FROVATRIPTAN
     Indication: Product used for unknown indication
     Route: 065
  110. MACROBID [Concomitant]
     Active Substance: NITROFURANTOIN\NITROFURANTOIN MONOHYDRATE
     Indication: Product used for unknown indication
     Route: 065
  111. POLYETHYLENE GLYCOL 3350 [Concomitant]
     Active Substance: POLYETHYLENE GLYCOL 3350
     Indication: Product used for unknown indication
     Route: 065
  112. METOCLOPRAMIDE [Concomitant]
     Active Substance: METOCLOPRAMIDE
     Indication: Product used for unknown indication
     Route: 065
  113. METOCLOPRAMIDE [Concomitant]
     Active Substance: METOCLOPRAMIDE
     Indication: Product used for unknown indication
     Route: 065
  114. METOCLOPRAMIDE [Concomitant]
     Active Substance: METOCLOPRAMIDE
     Indication: Product used for unknown indication
     Route: 065
  115. MOMETASONE FUROATE [Concomitant]
     Active Substance: MOMETASONE FUROATE
     Dosage: 2 DOSAGE FORM, Q12H
     Route: 065
  116. MOMETASONE FUROATE [Concomitant]
     Active Substance: MOMETASONE FUROATE
     Dosage: 2 DOSAGE FORM, Q12H
     Route: 065
  117. MOMETASONE FUROATE [Concomitant]
     Active Substance: MOMETASONE FUROATE
     Indication: Migraine
     Route: 065
  118. MOMETASONE FUROATE [Concomitant]
     Active Substance: MOMETASONE FUROATE
     Indication: Product used for unknown indication
     Route: 065
  119. MORPHINE SULFATE [Concomitant]
     Active Substance: MORPHINE SULFATE
     Indication: Product used for unknown indication
     Route: 065
  120. NAPROXEN [Concomitant]
     Active Substance: NAPROXEN
     Indication: Product used for unknown indication
     Route: 065
  121. OSELTAMIVIR [Concomitant]
     Active Substance: OSELTAMIVIR
     Indication: Product used for unknown indication
     Route: 065
  122. PANTOPRAZOLE SODIUM [Concomitant]
     Active Substance: PANTOPRAZOLE SODIUM
     Indication: Product used for unknown indication
     Route: 065
  123. PROPRANOLOL HYDROCHLORIDE [Concomitant]
     Active Substance: PROPRANOLOL HYDROCHLORIDE
     Route: 065
  124. PROPRANOLOL HYDROCHLORIDE [Concomitant]
     Active Substance: PROPRANOLOL HYDROCHLORIDE
     Route: 065
  125. PROPRANOLOL HYDROCHLORIDE [Concomitant]
     Active Substance: PROPRANOLOL HYDROCHLORIDE
     Indication: Product used for unknown indication
     Route: 065
  126. RABEPRAZOLE [Concomitant]
     Active Substance: RABEPRAZOLE
     Indication: Migraine
     Dosage: 1 DOSAGE FORM, Q12H
     Route: 065
  127. RABEPRAZOLE [Concomitant]
     Active Substance: RABEPRAZOLE
     Dosage: 1 DOSAGE FORM, Q12H
     Route: 065
  128. RABEPRAZOLE [Concomitant]
     Active Substance: RABEPRAZOLE
     Dosage: 1 DOSAGE FORM, Q12H
     Route: 065
  129. RABEPRAZOLE [Concomitant]
     Active Substance: RABEPRAZOLE
     Dosage: 1 DOSAGE FORM, Q12H
     Route: 065
  130. RABEPRAZOLE [Concomitant]
     Active Substance: RABEPRAZOLE
     Dosage: 1 DOSAGE FORM, Q12H
     Route: 065
  131. RABEPRAZOLE [Concomitant]
     Active Substance: RABEPRAZOLE
     Dosage: 1 DOSAGE FORM, Q12H
     Route: 065
  132. RABEPRAZOLE [Concomitant]
     Active Substance: RABEPRAZOLE
     Dosage: 1 DOSAGE FORM, Q12H
     Route: 065
  133. RABEPRAZOLE [Concomitant]
     Active Substance: RABEPRAZOLE
     Dosage: 1 DOSAGE FORM, Q12H
     Route: 065
  134. RABEPRAZOLE [Concomitant]
     Active Substance: RABEPRAZOLE
     Dosage: 1 DOSAGE FORM, Q12H
     Route: 065
  135. RABEPRAZOLE [Concomitant]
     Active Substance: RABEPRAZOLE
     Dosage: 1 DOSAGE FORM, Q12H
     Route: 065
  136. RABEPRAZOLE [Concomitant]
     Active Substance: RABEPRAZOLE
     Dosage: 1 DOSAGE FORM, Q12H
     Route: 065
  137. RABEPRAZOLE [Concomitant]
     Active Substance: RABEPRAZOLE
     Dosage: 1 DOSAGE FORM, Q12H
     Route: 065
  138. RABEPRAZOLE [Concomitant]
     Active Substance: RABEPRAZOLE
     Dosage: 1 DOSAGE FORM, Q12H
     Route: 065
  139. RABEPRAZOLE [Concomitant]
     Active Substance: RABEPRAZOLE
     Dosage: 1 DOSAGE FORM, Q12H
     Route: 065
  140. RABEPRAZOLE [Concomitant]
     Active Substance: RABEPRAZOLE
     Dosage: 1 DOSAGE FORM, Q12H
     Route: 065
  141. RABEPRAZOLE [Concomitant]
     Active Substance: RABEPRAZOLE
     Dosage: 1 DOSAGE FORM, Q12H
     Route: 065
  142. RABEPRAZOLE [Concomitant]
     Active Substance: RABEPRAZOLE
     Dosage: 1 DOSAGE FORM, Q12H
     Route: 065
  143. RABEPRAZOLE [Concomitant]
     Active Substance: RABEPRAZOLE
     Dosage: 1 DOSAGE FORM, Q12H
     Route: 065
  144. RABEPRAZOLE [Concomitant]
     Active Substance: RABEPRAZOLE
     Dosage: 1 DOSAGE FORM, Q12H
     Route: 065
  145. RABEPRAZOLE [Concomitant]
     Active Substance: RABEPRAZOLE
     Route: 065
  146. RIZATRIPTAN [Concomitant]
     Active Substance: RIZATRIPTAN
     Indication: Migraine
     Dosage: 1 DOSAGE FORM, QD
     Route: 065
  147. RIZATRIPTAN [Concomitant]
     Active Substance: RIZATRIPTAN
     Route: 065
  148. RIZATRIPTAN [Concomitant]
     Active Substance: RIZATRIPTAN
     Route: 065
  149. ALBUTEROL [Concomitant]
     Active Substance: ALBUTEROL
     Indication: Product used for unknown indication
     Route: 065
  150. ALBUTEROL [Concomitant]
     Active Substance: ALBUTEROL
     Indication: Product used for unknown indication
     Route: 065

REACTIONS (9)
  - Dysphonia [Unknown]
  - Swollen tongue [Unknown]
  - Headache [Unknown]
  - Swelling face [Unknown]
  - Angioedema [Unknown]
  - Hypersensitivity [Unknown]
  - Drug intolerance [Unknown]
  - Drug ineffective for unapproved indication [Unknown]
  - Off label use [Unknown]
